FAERS Safety Report 5253191-7 (Version None)
Quarter: 2007Q1

REPORT INFORMATION
  Report Type: 
  Country: None (occurrence: None)
  Receive Date: 20070301
  Receipt Date: 20070219
  Transmission Date: 20070707
  Serious: Yes (Life-Threatening, Other)
  Sender: FDA-Public Use
  Company Number: JP-MERCK-0702USA00511

PATIENT
  Age: 68 Year
  Sex: Male

DRUGS (5)
  1. PEPCID RPD [Suspect]
     Indication: STRESS
     Route: 048
     Dates: start: 20070122, end: 20070201
  2. ARTIST [Concomitant]
     Indication: HYPERTENSION
     Route: 048
     Dates: start: 20070122, end: 20070130
  3. MUCODYNE [Concomitant]
     Indication: PRODUCTIVE COUGH
     Route: 048
     Dates: start: 20070122, end: 20070201
  4. NITROGLYCERIN [Concomitant]
     Indication: HYPERTENSION
     Route: 048
     Dates: start: 20070123, end: 20070124
  5. LENDORMIN [Concomitant]
     Indication: INSOMNIA
     Route: 065
     Dates: start: 20070122, end: 20070131

REACTIONS (3)
  - AGRANULOCYTOSIS [None]
  - HEPATIC FUNCTION ABNORMAL [None]
  - RENAL IMPAIRMENT [None]
